FAERS Safety Report 9402757 (Version 1)
Quarter: 2013Q3

REPORT INFORMATION
  Report Type: Spontaneous
  Country: DE (occurrence: DE)
  Receive Date: 20130716
  Receipt Date: 20130716
  Transmission Date: 20140515
  Serious: Yes (Other)
  Sender: FDA-Public Use
  Company Number: DE-PFIZER INC-2013206609

PATIENT
  Age: 41 Year
  Sex: Female

DRUGS (5)
  1. AMLODIPINE BESILATE [Suspect]
     Indication: HYPERTENSION
     Dosage: 5 MG, 2X/DAY
     Route: 048
     Dates: start: 20070215, end: 20071001
  2. RAMIPRIL [Suspect]
     Indication: HYPERTENSION
     Dosage: 10 MG, 2X/DAY
     Route: 048
     Dates: start: 20070215, end: 20071001
  3. MOXONIDINE [Suspect]
     Indication: HYPERTENSION
     Dosage: 0.2 MG, 2X/DAY
     Route: 048
     Dates: start: 20070215, end: 20071001
  4. TORASEMIDE [Suspect]
     Indication: HYPERTENSION
     Dosage: 10 MG, 2X/DAY
     Route: 048
     Dates: start: 20070215, end: 20071001
  5. METOPROLOL TARTRATE [Concomitant]
     Dosage: UNK
     Dates: start: 20070215, end: 20071001

REACTIONS (1)
  - Premature rupture of membranes [Recovered/Resolved]
